FAERS Safety Report 6147440-0 (Version None)
Quarter: 2009Q2

REPORT INFORMATION
  Report Type: 
  Country: None (occurrence: None)
  Receive Date: 20090408
  Receipt Date: 20090330
  Transmission Date: 20091009
  Serious: Yes (Hospitalization)
  Sender: FDA-Public Use
  Company Number: FR-BRISTOL-MYERS SQUIBB COMPANY-14568471

PATIENT
  Age: 43 Year
  Sex: Male

DRUGS (12)
  1. AMOXICILLIN [Suspect]
     Indication: TRACHEITIS
  2. AMOXICILLIN [Suspect]
     Indication: PYREXIA
  3. PARACETAMOL [Suspect]
     Indication: TRACHEITIS
     Dates: start: 20040301
  4. PARACETAMOL [Suspect]
     Indication: PYREXIA
     Dates: start: 20040301
  5. AMOXICILLIN AND CLAVULANATE POTASSIUM [Suspect]
     Indication: TRACHEITIS
  6. AMOXICILLIN AND CLAVULANATE POTASSIUM [Suspect]
     Indication: PYREXIA
  7. JOSAMYCIN [Suspect]
     Indication: TRACHEITIS
  8. JOSAMYCIN [Suspect]
     Indication: PYREXIA
  9. BISOPROLOL [Concomitant]
  10. ASPIRIN [Concomitant]
  11. ALLOPURINOL [Concomitant]
  12. FOLIC ACID [Concomitant]

REACTIONS (1)
  - PANCREATITIS ACUTE [None]
